FAERS Safety Report 11779326 (Version 1)
Quarter: 2015Q4

REPORT INFORMATION
  Report Type: Spontaneous
  Country: CA (occurrence: CA)
  Receive Date: 20151125
  Receipt Date: 20151125
  Transmission Date: 20160304
  Serious: Yes (Other)
  Sender: FDA-Public Use
  Company Number: CA-TEVA-612142ACC

PATIENT
  Age: 72 Year
  Sex: Male

DRUGS (7)
  1. PROCYCLIDINE HCL [Concomitant]
     Active Substance: PROCYCLIDINE HYDROCHLORIDE
  2. SYNTHROID [Concomitant]
     Active Substance: LEVOTHYROXINE SODIUM
  3. CRESTOR [Concomitant]
     Active Substance: ROSUVASTATIN CALCIUM
  4. DIVALPROEX SODIUM. [Suspect]
     Active Substance: DIVALPROEX SODIUM
     Indication: BIPOLAR DISORDER
     Dosage: 1750 MILLIGRAM DAILY;
     Route: 065
  5. ABILIFY [Concomitant]
     Active Substance: ARIPIPRAZOLE
  6. PROSCAR [Concomitant]
     Active Substance: FINASTERIDE
  7. XATRAL [Concomitant]
     Active Substance: ALFUZOSIN

REACTIONS (2)
  - Hypernatraemia [Recovered/Resolved]
  - Thrombocytosis [Recovered/Resolved]
